FAERS Safety Report 15694704 (Version 1)
Quarter: 2018Q4

REPORT INFORMATION
  Report Type: Spontaneous
  Country: US (occurrence: US)
  Receive Date: 20181206
  Receipt Date: 20181206
  Transmission Date: 20190205
  Serious: No
  Sender: FDA-Public Use
  Company Number: US-ENDO PHARMACEUTICALS INC-2018-014807

PATIENT
  Sex: Male
  Weight: 80.73 kg

DRUGS (4)
  1. XIAFLEX [Suspect]
     Active Substance: COLLAGENASE CLOSTRIDIUM HISTOLYTICUM
     Indication: PEYRONIE^S DISEASE
     Dosage: UNK MG, THIRD CYCLE INJECTION 1, UNKNOWN
     Route: 026
     Dates: start: 201711
  2. XIAFLEX [Suspect]
     Active Substance: COLLAGENASE CLOSTRIDIUM HISTOLYTICUM
     Dosage: UNK MG, THIRD CYCLE INJECTION 2, UNKNOWN
     Route: 026
     Dates: start: 201711
  3. XIAFLEX [Suspect]
     Active Substance: COLLAGENASE CLOSTRIDIUM HISTOLYTICUM
     Dosage: UNK MG, SECOND CYCLE (2 INJECTIONS), UNKNOWN
     Route: 026
     Dates: start: 2017
  4. XIAFLEX [Suspect]
     Active Substance: COLLAGENASE CLOSTRIDIUM HISTOLYTICUM
     Dosage: UNK MG, FIRST CYCLE (2 INJECTIONS), UNKNOWN
     Route: 026
     Dates: start: 2017

REACTIONS (3)
  - Penile contusion [Unknown]
  - Penile pain [Not Recovered/Not Resolved]
  - Balanoposthitis [Unknown]

NARRATIVE: CASE EVENT DATE: 2017
